FAERS Safety Report 10237349 (Version 1)
Quarter: 2014Q2

REPORT INFORMATION
  Report Type: Spontaneous
  Country: US (occurrence: US)
  Receive Date: 20140613
  Receipt Date: 20140613
  Transmission Date: 20141212
  Serious: Yes (Other)
  Sender: FDA-Public Use
  Company Number: US-TEVA-487185USA

PATIENT
  Age: 58 Year
  Sex: 0

DRUGS (1)
  1. COPAXONE [Suspect]
     Indication: MULTIPLE SCLEROSIS
     Dates: start: 20040101

REACTIONS (5)
  - Epilepsy [Unknown]
  - Loss of consciousness [Unknown]
  - Road traffic accident [Unknown]
  - Memory impairment [Unknown]
  - Impaired driving ability [Unknown]
